FAERS Safety Report 20435313 (Version 3)
Quarter: 2023Q2

REPORT INFORMATION
  Report Type: Report from Study
  Country: JP (occurrence: JP)
  Receive Date: 20220206
  Receipt Date: 20230424
  Transmission Date: 20230721
  Serious: Yes (Other)
  Sender: FDA-Public Use
  Company Number: JP-TAKEDA-JP201603596

PATIENT
  Age: 1 Year
  Sex: Female

DRUGS (76)
  1. VELAGLUCERASE ALFA [Suspect]
     Active Substance: VELAGLUCERASE ALFA
     Indication: Gaucher^s disease type II
     Dosage: 400 - 600 INTERNATIONAL UNIT, Q2WEEKS
     Route: 041
     Dates: start: 20160113
  2. VELAGLUCERASE ALFA [Suspect]
     Active Substance: VELAGLUCERASE ALFA
     Dosage: 400 INTERNATIONAL UNIT, Q2WEEKS
     Route: 041
     Dates: end: 20200304
  3. VELAGLUCERASE ALFA [Suspect]
     Active Substance: VELAGLUCERASE ALFA
     Dosage: 600 INTERNATIONAL UNIT, Q2WEEKS
     Route: 041
     Dates: start: 20200318, end: 20200624
  4. VELAGLUCERASE ALFA [Suspect]
     Active Substance: VELAGLUCERASE ALFA
     Dosage: 800 INTERNATIONAL UNIT, Q2WEEKS
     Route: 041
     Dates: start: 20200708, end: 20220427
  5. VELAGLUCERASE ALFA [Suspect]
     Active Substance: VELAGLUCERASE ALFA
     Dosage: 1000 INTERNATIONAL UNIT, Q2WEEKS
     Route: 041
     Dates: start: 20220511, end: 20220622
  6. VELAGLUCERASE ALFA [Suspect]
     Active Substance: VELAGLUCERASE ALFA
     Dosage: 1200 INTERNATIONAL UNIT, Q2WEEKS
     Route: 041
     Dates: start: 20220706
  7. PREDONINE [Concomitant]
     Active Substance: PREDNISOLONE
     Indication: Product used for unknown indication
     Dosage: 10 MG, 1X/DAY:QD
     Route: 042
     Dates: start: 20160323, end: 20160323
  8. ACETAMINOPHEN [Concomitant]
     Active Substance: ACETAMINOPHEN
     Indication: Product used for unknown indication
     Dosage: 70 MG, UNKNOWN
     Route: 048
     Dates: start: 20160404
  9. ACETAMINOPHEN [Concomitant]
     Active Substance: ACETAMINOPHEN
     Dosage: 100 MG, UNKNOWN
     Route: 048
     Dates: end: 20170110
  10. ATARAX-P                           /00058402/ [Concomitant]
     Indication: Product used for unknown indication
     Dosage: 1 MILLILITER
     Route: 048
     Dates: start: 20160404, end: 20181002
  11. BROMAZEPAM [Concomitant]
     Active Substance: BROMAZEPAM
     Indication: Myoclonus
     Dosage: 2 GRAM
     Route: 048
     Dates: start: 20150831
  12. BROMAZEPAM [Concomitant]
     Active Substance: BROMAZEPAM
     Indication: Muscle tightness
     Dosage: 0.3 GRAM
     Route: 048
     Dates: start: 20150831
  13. BROMAZEPAM [Concomitant]
     Active Substance: BROMAZEPAM
     Indication: Prophylaxis
     Dosage: 9.6 GRAM
     Route: 048
     Dates: start: 20150831
  14. BROMAZEPAM [Concomitant]
     Active Substance: BROMAZEPAM
     Dosage: 0.9 GRAM
     Route: 048
     Dates: start: 20150831
  15. BROMAZEPAM [Concomitant]
     Active Substance: BROMAZEPAM
     Dosage: 1.5 GRAM
     Route: 048
     Dates: start: 20150831
  16. BROMAZEPAM [Concomitant]
     Active Substance: BROMAZEPAM
     Dosage: 4 GRAM
     Route: 048
     Dates: start: 20150831
  17. BROMAZEPAM [Concomitant]
     Active Substance: BROMAZEPAM
     Dosage: 7.6 GRAM
     Route: 048
  18. BROMAZEPAM [Concomitant]
     Active Substance: BROMAZEPAM
     Dosage: 9.0 GRAM
     Route: 048
  19. PHENOBAL                           /00023201/ [Concomitant]
     Indication: Product used for unknown indication
     Dosage: 2.8 GRAM
     Route: 048
  20. PHENOBAL                           /00023201/ [Concomitant]
     Dosage: 2.9 GRAM
     Route: 048
  21. PHENOBAL                           /00023201/ [Concomitant]
     Dosage: 3.3 GRAM
     Route: 048
  22. PHENOBAL                           /00023201/ [Concomitant]
     Dosage: 3.5 GRAM
     Route: 048
  23. TIZANIDINE [Concomitant]
     Active Substance: TIZANIDINE
     Indication: Product used for unknown indication
     Dosage: 1.5 GRAM
     Route: 048
     Dates: start: 20151001
  24. LEVETIRACETAM [Concomitant]
     Active Substance: LEVETIRACETAM
     Indication: Prophylaxis
     Dosage: 0.9 GRAM
     Route: 048
  25. RIVOTRIL [Concomitant]
     Active Substance: CLONAZEPAM
     Indication: Prophylaxis
     Dosage: 1.3 GRAM
     Route: 048
     Dates: start: 20151020
  26. DEPAKENE                           /00228501/ [Concomitant]
     Indication: Prophylaxis
     Dosage: 2 MILLILITER
     Route: 048
     Dates: start: 20160523, end: 20190918
  27. SINGULAIR [Concomitant]
     Active Substance: MONTELUKAST SODIUM
     Dosage: 4 MILLIGRAM
     Route: 048
     Dates: start: 20151123
  28. DIETARY SUPPLEMENT\UBIDECARENONE [Concomitant]
     Active Substance: DIETARY SUPPLEMENT\UBIDECARENONE
     Dosage: 1 GRAM
     Route: 048
     Dates: start: 20170309
  29. ONEDURO [Concomitant]
     Active Substance: FENTANYL
     Indication: Pain
     Dosage: 1.7 MILLIGRAM
     Route: 050
     Dates: start: 20160908, end: 20220511
  30. MORPHINE HYDROCHLORIDE [Concomitant]
     Active Substance: MORPHINE HYDROCHLORIDE
     Indication: Pain
     Dosage: 0.06 GRAM
     Route: 048
     Dates: start: 20161117
  31. MORPHINE HYDROCHLORIDE [Concomitant]
     Active Substance: MORPHINE HYDROCHLORIDE
     Dosage: 0.04 GRAM
     Route: 048
  32. MORPHINE HYDROCHLORIDE [Concomitant]
     Active Substance: MORPHINE HYDROCHLORIDE
     Dosage: 0.001 GRAM
     Route: 048
     Dates: end: 20201123
  33. BACLOFEN [Concomitant]
     Active Substance: BACLOFEN
     Indication: Muscle tightness
     Dosage: 5 MILLIGRAM
     Route: 048
     Dates: start: 20160523
  34. BACLOFEN [Concomitant]
     Active Substance: BACLOFEN
     Dosage: 10 MILLIGRAM
     Route: 048
  35. PULMICORT TURBUHALER [Concomitant]
     Active Substance: BUDESONIDE
     Dosage: 2 MILLILITER
     Route: 050
     Dates: start: 20151125
  36. TRICLOFOS SODIUM [Concomitant]
     Active Substance: TRICLOFOS SODIUM
     Indication: Myoclonus
     Dosage: 16 MILLILITER
     Route: 048
     Dates: end: 20170906
  37. TRICLOFOS SODIUM [Concomitant]
     Active Substance: TRICLOFOS SODIUM
     Indication: Muscle tightness
  38. SOLU-MEDROL [Concomitant]
     Active Substance: METHYLPREDNISOLONE SODIUM SUCCINATE
     Indication: Product used for unknown indication
     Dosage: 20 MG, UNK
     Route: 042
     Dates: start: 20170221
  39. MAGNESIUM OXIDE [Concomitant]
     Active Substance: MAGNESIUM OXIDE
     Dosage: 1 GRAM
     Route: 048
     Dates: start: 20161213, end: 20220302
  40. AMOXICILLIN [Concomitant]
     Active Substance: AMOXICILLIN
     Indication: Product used for unknown indication
     Dosage: 50 MILLIGRAM
     Route: 042
     Dates: start: 20170110, end: 20170207
  41. CERCINE [Concomitant]
     Active Substance: DIAZEPAM
     Indication: Myoclonus
     Dosage: 8 MILLILITER
     Dates: start: 20160509, end: 20170517
  42. CERCINE [Concomitant]
     Active Substance: DIAZEPAM
     Indication: Muscle tightness
  43. ROZEREM [Concomitant]
     Active Substance: RAMELTEON
     Indication: Insomnia
     Dosage: 0.5 DOSAGE FORM, QD
     Route: 065
     Dates: start: 20151123, end: 20170725
  44. MOSAPRIDE CITRATE [Concomitant]
     Active Substance: MOSAPRIDE CITRATE
     Indication: Dyspepsia
     Dosage: 0.75 GRAM
     Route: 048
     Dates: start: 20160709
  45. MOSAPRIDE CITRATE [Concomitant]
     Active Substance: MOSAPRIDE CITRATE
     Dosage: 0.5 GRAM
     Route: 048
  46. MOSAPRIDE CITRATE [Concomitant]
     Active Substance: MOSAPRIDE CITRATE
     Dosage: 0.75 GRAM
     Route: 048
  47. SODIUM CHLORIDE [Concomitant]
     Active Substance: SODIUM CHLORIDE
     Indication: Inhalation therapy
     Dosage: 20 MILLILITER, QD
     Route: 050
     Dates: start: 20150822
  48. POTASSIUM CHLORIDE\SODIUM CHLORIDE\SODIUM LACTATE [Concomitant]
     Active Substance: POTASSIUM CHLORIDE\SODIUM CHLORIDE\SODIUM LACTATE
     Indication: Fluid replacement
     Dosage: 4 GRAM
     Route: 048
     Dates: start: 20150929
  49. GLYCOSAMINOGLYCANS [Concomitant]
     Active Substance: GLYCOSAMINOGLYCANS
     Dosage: UNK UNK, BID
     Route: 003
     Dates: start: 20160310
  50. WHITE PETROLATUM [Concomitant]
     Active Substance: PETROLATUM
     Dosage: UNK
     Route: 050
     Dates: start: 20160829, end: 20170405
  51. KENEI ENEMA [Concomitant]
     Dosage: 30 MILLILITER
     Route: 054
     Dates: start: 20151028
  52. AZUNOL #1 [Concomitant]
     Dosage: UNK
     Route: 003
     Dates: start: 20151207
  53. CARBOCYSTEINE [Concomitant]
     Active Substance: CARBOCYSTEINE
     Dosage: 1 GRAM
     Route: 048
     Dates: start: 20151221
  54. SODIUM DECAHYDROAZULENE-1-SULFONATE [Concomitant]
     Active Substance: SODIUM DECAHYDROAZULENE-1-SULFONATE
     Dosage: UNK
     Route: 047
     Dates: start: 20150831, end: 20180613
  55. DIMETHICONE [Concomitant]
     Active Substance: DIMETHICONE
     Dosage: 1.5 MILLILITER
     Route: 048
     Dates: start: 20160709
  56. SODIUM PICOSULFATE [Concomitant]
     Active Substance: SODIUM PICOSULFATE
     Dosage: UNK
     Route: 048
     Dates: start: 20161122, end: 20210623
  57. ENEVO [Concomitant]
     Indication: Nutritional supplementation
     Dosage: 250 MILLILITER
     Route: 065
     Dates: start: 20170920
  58. SAXIZON [Concomitant]
     Active Substance: HYDROCORTISONE SODIUM SUCCINATE
     Indication: Product used for unknown indication
     Dosage: 50 MILLIGRAM
     Route: 042
     Dates: start: 20170110, end: 20170207
  59. SAXIZON [Concomitant]
     Active Substance: HYDROCORTISONE SODIUM SUCCINATE
     Dosage: 50 MILLIGRAM, 2/MONTH
     Route: 042
     Dates: start: 20170405, end: 20170627
  60. SAXIZON [Concomitant]
     Active Substance: HYDROCORTISONE SODIUM SUCCINATE
     Dosage: 50 MILLIGRAM
     Route: 042
     Dates: start: 20170726, end: 20170726
  61. SAXIZON [Concomitant]
     Active Substance: HYDROCORTISONE SODIUM SUCCINATE
     Dosage: 50 MILLIGRAM, 2/MONTH
     Route: 042
     Dates: start: 20170809, end: 20180322
  62. SAXIZON [Concomitant]
     Active Substance: HYDROCORTISONE SODIUM SUCCINATE
     Dosage: 50 MILLIGRAM, MONTHLY
     Route: 042
     Dates: start: 20180418, end: 20180502
  63. SAXIZON [Concomitant]
     Active Substance: HYDROCORTISONE SODIUM SUCCINATE
     Dosage: 50 MILLIGRAM, 2/MONTH
     Route: 042
     Dates: start: 20180516
  64. IMIGLUCERASE RECOMBINANT [Concomitant]
     Indication: Gaucher^s disease type II
     Dosage: UNK
     Route: 065
     Dates: start: 20150728, end: 20151228
  65. MEDROL [Concomitant]
     Active Substance: METHYLPREDNISOLONE
     Dosage: 2 DOSAGE FORM, BID
     Route: 065
     Dates: start: 20171012, end: 20171023
  66. CALONAL [Concomitant]
     Active Substance: ACETAMINOPHEN
     Dosage: 0.3 GRAM
     Route: 048
     Dates: start: 20171012, end: 20171014
  67. CALONAL [Concomitant]
     Active Substance: ACETAMINOPHEN
     Dosage: 0.54 GRAM
     Route: 048
     Dates: start: 20200213, end: 20200227
  68. CALONAL [Concomitant]
     Active Substance: ACETAMINOPHEN
     Dosage: 200 MILLIGRAM
     Route: 048
     Dates: start: 20200415
  69. AZULENE [Concomitant]
     Active Substance: AZULENE
     Dosage: UNK
     Route: 065
     Dates: start: 20180207
  70. ZINC [Concomitant]
     Active Substance: ZINC
     Dosage: 25 MILLIGRAM
     Route: 048
     Dates: start: 20191113
  71. UBIDECARENONE [Concomitant]
     Active Substance: UBIDECARENONE
     Dosage: 1 GRAM
     Route: 048
  72. BIO-THREE [Concomitant]
     Active Substance: HERBALS
     Dosage: 1.8 GRAM
     Route: 048
     Dates: start: 20200318
  73. MENATETRENONE [Concomitant]
     Active Substance: MENATETRENONE
     Dosage: 15 MILLIGRAM
     Route: 065
     Dates: start: 20200318
  74. ALFAROL [Concomitant]
     Active Substance: ALFACALCIDOL
     Dosage: 0.25 GRAM
     Route: 065
     Dates: start: 20200527
  75. GLYCERIN [Concomitant]
     Active Substance: GLYCERIN
     Dosage: 30 MILLILITER
     Route: 054
  76. AZUNOL [Concomitant]
     Dosage: UNK
     Route: 065

REACTIONS (11)
  - Erythema [Recovered/Resolved]
  - Tachycardia [Recovered/Resolved]
  - Swelling of eyelid [Recovered/Resolved]
  - Antibody test positive [Unknown]
  - Hepatic function abnormal [Not Recovered/Not Resolved]
  - Respiratory tract infection [Recovered/Resolved]
  - Constipation [Unknown]
  - Anaemia [Recovered/Resolved]
  - Hepatic function abnormal [Recovered/Resolved]
  - Liver disorder [Recovered/Resolved]
  - Zinc deficiency [Not Recovered/Not Resolved]

NARRATIVE: CASE EVENT DATE: 20160307
